FAERS Safety Report 4533210-3 (Version None)
Quarter: 2005Q1

REPORT INFORMATION
  Report Type: 
  Country: None (occurrence: None)
  Receive Date: 20041206
  Receipt Date: 20041021
  Transmission Date: 20050727
  Serious: No
  Sender: FDA-Public Use
  Company Number: USA041082183

PATIENT
  Age: 21 Year
  Sex: Female

DRUGS (1)
  1. CYMBALTA [Suspect]
     Dosage: 30 MG/1 DAY
     Dates: start: 20041020, end: 20041021

REACTIONS (1)
  - TACHYCARDIA [None]
